FAERS Safety Report 4738053-3 (Version None)
Quarter: 2005Q3

REPORT INFORMATION
  Report Type: 
  Country: None (occurrence: None)
  Receive Date: 20050805
  Receipt Date: 20050805
  Transmission Date: 20060218
  Serious: Yes (Hospitalization)
  Sender: FDA-Public Use
  Company Number: None

PATIENT
  Age: 45 Year
  Sex: Male

DRUGS (2)
  1. MOXIFLOXACIN [Suspect]
     Indication: INFECTION
     Dosage: 400 MG PO QD X 10 DAYS
     Route: 048
  2. MOXIFLOXACIN [Suspect]
     Indication: PNEUMONIA
     Dosage: 400 MG PO QD X 10 DAYS
     Route: 048

REACTIONS (5)
  - ABDOMINAL PAIN [None]
  - CLOSTRIDIAL INFECTION [None]
  - DIARRHOEA [None]
  - NAUSEA [None]
  - THERAPY NON-RESPONDER [None]
